FAERS Safety Report 9948473 (Version 1)
Quarter: 2014Q1

REPORT INFORMATION
  Report Type: Report from Study
  Country: GB (occurrence: GB)
  Receive Date: 20140304
  Receipt Date: 20140304
  Transmission Date: 20141002
  Serious: Yes (Death, Other)
  Sender: FDA-Public Use
  Company Number: GB-ROCHE-1354229

PATIENT
  Age: 84 Year
  Sex: Female

DRUGS (1)
  1. RITUXIMAB [Suspect]
     Indication: RHEUMATOID ARTHRITIS
     Dosage: LAST DOSE PRIOR TO SAE: 27 SEP 2011
     Route: 065
     Dates: start: 20100924

REACTIONS (2)
  - Bronchopneumonia [Fatal]
  - Obliterative bronchiolitis [Unknown]
